FAERS Safety Report 10242175 (Version 1)
Quarter: 2014Q2

REPORT INFORMATION
  Report Type: Spontaneous
  Country: US (occurrence: None)
  Receive Date: 20140613
  Receipt Date: 20140613
  Transmission Date: 20141212
  Serious: Yes (Hospitalization)
  Sender: FDA-Public Use
  Company Number: UNT-2014-001686

PATIENT
  Age: 4 Year
  Sex: Male
  Weight: 19 kg

DRUGS (2)
  1. REMODULIN [Suspect]
     Indication: COR PULMONALE CHRONIC
     Dosage: 0.062 UG/KG, CONTINUING, IV DRIP
     Route: 041
     Dates: start: 20110331
  2. REVATIO [Concomitant]

REACTIONS (2)
  - Pneumonia [None]
  - Metapneumovirus infection [None]
